FAERS Safety Report 5782169-X (Version None)
Quarter: 2008Q2

REPORT INFORMATION
  Report Type: 
  Country: None (occurrence: None)
  Receive Date: 20080618
  Receipt Date: 20080603
  Transmission Date: 20081010
  Serious: Yes (Life-Threatening, Hospitalization)
  Sender: FDA-Public Use
  Company Number: 2008S1009714

PATIENT
  Age: 76 Year
  Sex: Female

DRUGS (6)
  1. METOPROLOL TARTRATE [Suspect]
     Indication: DRUG USE FOR UNKNOWN INDICATION
     Dates: start: 20051101, end: 20080526
  2. ASPIRIN [Concomitant]
  3. BECLOMETHASONE DIPROPIONATE [Concomitant]
  4. IRBESARTAN [Concomitant]
  5. ALBUTEROL [Concomitant]
  6. SIMVASTATIN [Concomitant]

REACTIONS (1)
  - ASTHMA [None]
